FAERS Safety Report 17616499 (Version 1)
Quarter: 2020Q2

REPORT INFORMATION
  Report Type: Spontaneous
  Country: US (occurrence: US)
  Receive Date: 20200402
  Receipt Date: 20200402
  Transmission Date: 20200713
  Serious: Yes (Other)
  Sender: FDA-Public Use
  Company Number: None

PATIENT
  Age: 81 Year
  Sex: Female

DRUGS (1)
  1. BEOVU [Suspect]
     Active Substance: BROLUCIZUMAB-DBLL
     Indication: MACULAR DEGENERATION
     Dates: start: 20200128

REACTIONS (2)
  - Blindness [None]
  - Visual field defect [None]

NARRATIVE: CASE EVENT DATE: 20200310
